FAERS Safety Report 7285353-1 (Version None)
Quarter: 2011Q1

REPORT INFORMATION
  Report Type: 
  Country: None (occurrence: None)
  Receive Date: 20110210
  Receipt Date: 20110201
  Transmission Date: 20110831
  Serious: Yes (Other)
  Sender: FDA-Public Use
  Company Number: CA-ROCHE-757291

PATIENT
  Sex: Male
  Weight: 70 kg

DRUGS (3)
  1. TOCILIZUMAB [Suspect]
     Indication: RHEUMATOID ARTHRITIS
     Route: 042
     Dates: start: 20101122
  2. METHOTREXATE [Concomitant]
  3. INSULIN [Concomitant]

REACTIONS (1)
  - SKIN ULCER [None]
